FAERS Safety Report 23319056 (Version 2)
Quarter: 2024Q1

REPORT INFORMATION
  Report Type: Spontaneous
  Country: US (occurrence: US)
  Receive Date: 20231220
  Receipt Date: 20240109
  Transmission Date: 20240410
  Serious: No
  Sender: FDA-Public Use
  Company Number: US-SAGE-2023SAGE000128

PATIENT
  Age: 17 Year
  Sex: Female

DRUGS (1)
  1. ZULRESSO [Suspect]
     Active Substance: BREXANOLONE
     Indication: Perinatal depression
     Dosage: UNK
     Route: 042
     Dates: start: 20231128, end: 20231130

REACTIONS (2)
  - Post-traumatic stress disorder [Unknown]
  - Incorrect product administration duration [Unknown]

NARRATIVE: CASE EVENT DATE: 20231128
